FAERS Safety Report 10838042 (Version 1)
Quarter: 2015Q1

REPORT INFORMATION
  Report Type: Report from Study
  Country: US (occurrence: US)
  Receive Date: 20150219
  Receipt Date: 20150219
  Transmission Date: 20150721
  Serious: Yes (Other)
  Sender: FDA-Public Use
  Company Number: US-ABBVIE-14P-163-1230602-00

PATIENT
  Age: 51 Year
  Sex: Female

DRUGS (3)
  1. VITAMIN B12 [Concomitant]
     Active Substance: CYANOCOBALAMIN
     Indication: PRODUCT USED FOR UNKNOWN INDICATION
     Dosage: MONTHLY
     Route: 058
  2. HUMIRA [Suspect]
     Active Substance: ADALIMUMAB
     Indication: ANKYLOSING SPONDYLITIS
     Route: 058
     Dates: start: 201203
  3. OTC ADVIL [Concomitant]
     Indication: PAIN
     Route: 048

REACTIONS (8)
  - Sinusitis [Unknown]
  - Knee operation [Not Recovered/Not Resolved]
  - Pyrexia [Unknown]
  - Drug dose omission [Unknown]
  - Spinal pain [Unknown]
  - Arthralgia [Unknown]
  - Pain [Unknown]
  - Neck pain [Unknown]

NARRATIVE: CASE EVENT DATE: 201303
